FAERS Safety Report 9462918 (Version 1)
Quarter: 2013Q3

REPORT INFORMATION
  Report Type: Spontaneous
  Country: JP (occurrence: None)
  Receive Date: 20130814
  Receipt Date: 20130814
  Transmission Date: 20140515
  Serious: No
  Sender: FDA-Public Use
  Company Number: TCI2013A04885

PATIENT
  Age: 68 Year
  Sex: Female

DRUGS (1)
  1. TAKEPRON OD TABLETS 15 (LANSOPRAZOLE) [Suspect]
     Route: 048
     Dates: start: 201206, end: 201208

REACTIONS (1)
  - Drug-induced liver injury [None]
